FAERS Safety Report 22175684 (Version 2)
Quarter: 2023Q2

REPORT INFORMATION
  Report Type: Report from Study
  Country: JP (occurrence: JP)
  Receive Date: 20230405
  Receipt Date: 20230411
  Transmission Date: 20230721
  Serious: Yes (Hospitalization, Other)
  Sender: FDA-Public Use
  Company Number: JP-TAKEDA-2023TJP003986AA

PATIENT

DRUGS (17)
  1. NIRAPARIB [Suspect]
     Active Substance: NIRAPARIB
     Indication: Cholangiocarcinoma
     Dosage: 200 MG, QD
     Route: 065
     Dates: start: 20230105, end: 20230326
  2. VONOPRAZAN FUMARATE [Concomitant]
     Active Substance: VONOPRAZAN FUMARATE
     Indication: Gastritis prophylaxis
     Dosage: 20 MG, QD
     Route: 048
     Dates: start: 20230216, end: 20230326
  3. EDOXABAN TOSYLATE [Concomitant]
     Active Substance: EDOXABAN TOSYLATE
     Indication: Embolism venous
     Dosage: 60 MG, QD
     Route: 048
     Dates: end: 20230326
  4. ZINC [Concomitant]
     Active Substance: ZINC
     Indication: Taste disorder
     Dosage: 25 MG, TID
     Route: 048
     Dates: end: 20230326
  5. BILASTINE [Concomitant]
     Active Substance: BILASTINE
     Indication: Seasonal allergy
     Dosage: 20 MG, QD
     Route: 048
     Dates: start: 20230216, end: 20230326
  6. MAGNESIUM OXIDE [Concomitant]
     Active Substance: MAGNESIUM OXIDE
     Indication: Constipation
     Dosage: 660 MG, TID
     Route: 048
     Dates: end: 20230326
  7. CALONAL [Concomitant]
     Active Substance: ACETAMINOPHEN
     Indication: Pain
     Dosage: 500 MG, TID
     Route: 048
     Dates: start: 20230216, end: 20230315
  8. CALONAL [Concomitant]
     Active Substance: ACETAMINOPHEN
     Dosage: 1000 MG, TID
     Route: 048
     Dates: start: 20230316, end: 20230326
  9. URSO [Concomitant]
     Active Substance: URSODIOL
     Indication: Product used for unknown indication
     Dosage: 100 MG, TID
     Route: 048
     Dates: end: 20230326
  10. LOXOPROFEN SODIUM [Concomitant]
     Active Substance: LOXOPROFEN SODIUM
     Indication: Pain
     Dosage: 60 MG, TID
     Route: 048
     Dates: start: 20230323, end: 20230326
  11. MIROGABALIN BESYLATE [Concomitant]
     Active Substance: MIROGABALIN BESYLATE
     Indication: Abdominal pain upper
     Dosage: 5 MG, BID
     Route: 048
     Dates: start: 20230323, end: 20230326
  12. DAYVIGO [Concomitant]
     Active Substance: LEMBOREXANT
     Indication: Sleep disorder
     Dosage: 5 MG, QD
     Route: 048
     Dates: start: 20230323, end: 20230326
  13. HYDROMORPHONE HYDROCHLORIDE [Concomitant]
     Active Substance: HYDROMORPHONE HYDROCHLORIDE
     Indication: Pain
     Dosage: 2 MG
     Route: 048
     Dates: start: 20230323
  14. HYDROMORPHONE HYDROCHLORIDE [Concomitant]
     Active Substance: HYDROMORPHONE HYDROCHLORIDE
     Indication: Pain
     Dosage: 12 MG, QD
     Route: 048
     Dates: start: 20230323, end: 20230326
  15. BUTYLSCOPOLAMINE BROMIDE [Concomitant]
     Active Substance: BUTYLSCOPOLAMINE BROMIDE
     Indication: Pain
     Dosage: 10 MG
     Route: 048
     Dates: start: 20230323, end: 20230326
  16. EPINASTINE HYDROCHLORIDE [Concomitant]
     Active Substance: EPINASTINE HYDROCHLORIDE
     Indication: Seasonal allergy
     Dosage: UNK, BID
     Route: 047
     Dates: start: 20230302, end: 20230326
  17. NASONEX [Concomitant]
     Active Substance: MOMETASONE FUROATE
     Indication: Seasonal allergy
     Dosage: UNK UNK, QD
     Route: 045
     Dates: start: 20230302, end: 20230326

REACTIONS (3)
  - Cholangiocarcinoma [Not Recovered/Not Resolved]
  - Cholecystitis [Not Recovered/Not Resolved]
  - Off label use [Unknown]

NARRATIVE: CASE EVENT DATE: 20230105
